FAERS Safety Report 16182584 (Version 1)
Quarter: 2019Q2

REPORT INFORMATION
  Report Type: Spontaneous
  Country: US (occurrence: US)
  Receive Date: 20190411
  Receipt Date: 20190411
  Transmission Date: 20190711
  Serious: Yes (Other)
  Sender: FDA-Public Use
  Company Number: US-CIPLA LTD.-2019US01886

PATIENT

DRUGS (13)
  1. IRINOTECAN [Suspect]
     Active Substance: IRINOTECAN
     Indication: RECTOSIGMOID CANCER METASTATIC
     Dosage: UNK, 3 CYCLES
     Route: 065
  2. 5-FLUOROURACIL                     /00098801/ [Suspect]
     Active Substance: FLUOROURACIL
     Indication: RECTOSIGMOID CANCER RECURRENT
     Dosage: UNK
     Route: 065
  3. 5-FLUOROURACIL                     /00098801/ [Suspect]
     Active Substance: FLUOROURACIL
     Dosage: 2400 MILLIGRAM/KILOGRAM, 6 CYCLES
     Route: 065
  4. ZALTRAP [Suspect]
     Active Substance: ZIV-AFLIBERCEPT
     Indication: RECTOSIGMOID CANCER METASTATIC
     Dosage: 4 MILLIGRAM/KILOGRAM, 6 CYCLES
     Route: 065
  5. BEVACIZUMAB. [Suspect]
     Active Substance: BEVACIZUMAB
     Indication: RECTOSIGMOID CANCER RECURRENT
     Dosage: UNK
     Route: 065
  6. OXALIPLATIN. [Suspect]
     Active Substance: OXALIPLATIN
     Indication: RECTOSIGMOID CANCER
     Dosage: UNK
     Route: 065
  7. CETUXIMAB. [Suspect]
     Active Substance: CETUXIMAB
     Indication: RECTOSIGMOID CANCER METASTATIC
     Dosage: UNK
     Route: 065
  8. IRINOTECAN [Suspect]
     Active Substance: IRINOTECAN
     Indication: RECTOSIGMOID CANCER RECURRENT
     Dosage: UNK
     Route: 065
  9. 5-FLUOROURACIL                     /00098801/ [Suspect]
     Active Substance: FLUOROURACIL
     Indication: RECTOSIGMOID CANCER METASTATIC
     Dosage: UNK, 3 CYCLES
     Route: 065
  10. LEUCOVORIN                         /00566701/ [Suspect]
     Active Substance: LEUCOVORIN
     Dosage: UNK, 6 CYCLES
     Route: 065
  11. IRINOTECAN [Suspect]
     Active Substance: IRINOTECAN
     Dosage: 180 MILLIGRAM/KILOGRAM, 6 CYCLES
     Route: 065
  12. LEUCOVORIN                         /00566701/ [Suspect]
     Active Substance: LEUCOVORIN
     Indication: RECTOSIGMOID CANCER METASTATIC
     Dosage: UNK, 3 CYCLES
     Route: 065
  13. LEUCOVORIN                         /00566701/ [Suspect]
     Active Substance: LEUCOVORIN
     Indication: RECTOSIGMOID CANCER RECURRENT
     Dosage: UNK
     Route: 065

REACTIONS (4)
  - Malignant neoplasm progression [Unknown]
  - Rectosigmoid cancer recurrent [Unknown]
  - Rectosigmoid cancer metastatic [Unknown]
  - Transient ischaemic attack [Unknown]
